FAERS Safety Report 4883660-0 (Version None)
Quarter: 2006Q1

REPORT INFORMATION
  Report Type: 
  Country: None (occurrence: None)
  Receive Date: 20060117
  Receipt Date: 20060117
  Transmission Date: 20060701
  Serious: Yes (Other)
  Sender: FDA-Public Use
  Company Number: None

PATIENT
  Age: 35 Year
  Sex: Female
  Weight: 58.9676 kg

DRUGS (3)
  1. LEVAQUIN [Suspect]
     Indication: ANTIBIOTIC PROPHYLAXIS
     Dosage: 1 TABLET   EVERY 12 HOURS   PO
     Route: 048
     Dates: start: 20060105, end: 20060111
  2. LEVAQUIN [Suspect]
     Indication: OSTEOMYELITIS
     Dosage: 1 TABLET   EVERY 12 HOURS   PO
     Route: 048
     Dates: start: 20060105, end: 20060111
  3. CEFADROXIL [Concomitant]

REACTIONS (4)
  - ARTHROPATHY [None]
  - FATIGUE [None]
  - HYPERSOMNIA [None]
  - TENDON DISORDER [None]
